FAERS Safety Report 10528428 (Version 1)
Quarter: 2014Q4

REPORT INFORMATION
  Report Type: Spontaneous
  Country: US (occurrence: None)
  Receive Date: 20141017
  Receipt Date: 20141017
  Transmission Date: 20150528
  Serious: Yes (Hospitalization, Other)
  Sender: FDA-Public Use
  Company Number: None

PATIENT
  Age: 68 Year
  Sex: Female
  Weight: 49.9 kg

DRUGS (1)
  1. PRILOSEC [Suspect]
     Active Substance: OMEPRAZOLE MAGNESIUM
     Indication: ABDOMINAL PAIN UPPER
     Dosage: 1 ONCE DAILY TAKEN BY MOUTH
     Route: 048
     Dates: start: 20140911, end: 20140920

REACTIONS (8)
  - Hypertension [None]
  - Hypoaesthesia [None]
  - Feeling abnormal [None]
  - Panic attack [None]
  - Anxiety [None]
  - Dizziness [None]
  - Migraine [None]
  - Heart rate irregular [None]

NARRATIVE: CASE EVENT DATE: 20140929
